FAERS Safety Report 22159714 (Version 1)
Quarter: 2023Q1

REPORT INFORMATION
  Report Type: Spontaneous
  Country: US (occurrence: US)
  Receive Date: 20230331
  Receipt Date: 20230331
  Transmission Date: 20230418
  Serious: No
  Sender: FDA-Public Use
  Company Number: US-BoehringerIngelheim-2023-BI-228128

PATIENT
  Age: 86 Year
  Sex: Female

DRUGS (1)
  1. JARDIANCE [Suspect]
     Active Substance: EMPAGLIFLOZIN
     Indication: Type 2 diabetes mellitus
     Dates: start: 20230302

REACTIONS (12)
  - Illness [Unknown]
  - Decreased appetite [Unknown]
  - Headache [Unknown]
  - Feeling abnormal [Unknown]
  - Peripheral swelling [Unknown]
  - Dizziness [Unknown]
  - Nausea [Unknown]
  - Fatigue [Unknown]
  - Pain [Unknown]
  - Fall [Unknown]
  - Pain in extremity [Unknown]
  - Contusion [Unknown]

NARRATIVE: CASE EVENT DATE: 20230301
